FAERS Safety Report 21960680 (Version 3)
Quarter: 2023Q2

REPORT INFORMATION
  Report Type: Report from Study
  Country: CO (occurrence: CO)
  Receive Date: 20230207
  Receipt Date: 20230626
  Transmission Date: 20230722
  Serious: Yes (Hospitalization, Other)
  Sender: FDA-Public Use
  Company Number: CO-ABBVIE-4296473

PATIENT
  Age: 59 Year
  Sex: Male
  Weight: 67 kg

DRUGS (1)
  1. ZEMPLAR [Suspect]
     Active Substance: PARICALCITOL
     Indication: Chronic kidney disease
     Route: 042
     Dates: start: 20140320, end: 20230114

REACTIONS (10)
  - Ventricular arrhythmia [Recovering/Resolving]
  - Loss of consciousness [Recovering/Resolving]
  - COVID-19 [Recovering/Resolving]
  - Infarction [Unknown]
  - Pneumonia [Recovering/Resolving]
  - Angina unstable [Recovering/Resolving]
  - Ischaemia [Unknown]
  - Mobility decreased [Recovering/Resolving]
  - Asthenia [Recovering/Resolving]
  - Blood parathyroid hormone abnormal [Not Recovered/Not Resolved]

NARRATIVE: CASE EVENT DATE: 20220701
